FAERS Safety Report 7800049-2 (Version None)
Quarter: 2011Q4

REPORT INFORMATION
  Report Type: 
  Country: None (occurrence: None)
  Receive Date: 20111006
  Receipt Date: 20110929
  Transmission Date: 20120403
  Serious: Yes (Other)
  Sender: FDA-Public Use
  Company Number: US-UCBSA-8033303

PATIENT
  Sex: Male

DRUGS (8)
  1. KEPPRA [Suspect]
     Indication: MOOD SWINGS
     Dosage: DOSE FREQ.: DAILY
     Route: 064
     Dates: start: 20050301, end: 20060101
  2. KEPPRA [Suspect]
     Indication: BIPOLAR DISORDER
     Dosage: DOSE FREQ.: DAILY
     Route: 064
     Dates: start: 20050301, end: 20060101
  3. LIPITOR [Concomitant]
     Indication: HYPERCHOLESTEROLAEMIA
     Dosage: DOSE FREQ.: DAILY
     Route: 048
     Dates: start: 20050301, end: 20060405
  4. MINOCYCLINE HCL [Concomitant]
     Indication: ACNE
     Dates: start: 20050601, end: 20050719
  5. LAMICTAL [Concomitant]
     Indication: BIPOLAR DISORDER
     Dosage: DOSE FREQ.: DAILY
     Dates: start: 20030101, end: 20060405
  6. KEPPRA [Suspect]
     Dosage: DOSE FREQ.: DAILY
     Route: 064
     Dates: start: 20060101
  7. KEPPRA [Suspect]
     Dosage: DOSE FREQ.: DAILY
     Route: 064
     Dates: start: 20060101
  8. VISTARIL [Concomitant]
     Indication: ANXIETY
     Route: 048
     Dates: start: 20030101, end: 20060405

REACTIONS (4)
  - SPEECH DISORDER DEVELOPMENTAL [None]
  - MATERNAL EXPOSURE DURING PREGNANCY [None]
  - DEVELOPMENTAL DELAY [None]
  - VESICOURETERIC REFLUX [None]
